FAERS Safety Report 17297321 (Version 1)
Quarter: 2020Q1

REPORT INFORMATION
  Report Type: Spontaneous
  Country: PT (occurrence: PT)
  Receive Date: 20200122
  Receipt Date: 20200122
  Transmission Date: 20200409
  Serious: Yes (Other)
  Sender: FDA-Public Use
  Company Number: PT-AUROBINDO-AUR-APL-2020-003123

PATIENT
  Age: 27 Year
  Sex: Female

DRUGS (3)
  1. DEFLAZACORT [Concomitant]
     Active Substance: DEFLAZACORT
     Indication: UPPER RESPIRATORY TRACT INFECTION
     Dosage: UNK
     Route: 048
     Dates: start: 20180520, end: 20180523
  2. NIMESULIDE [Concomitant]
     Active Substance: NIMESULIDE
     Indication: UPPER RESPIRATORY TRACT INFECTION
     Dosage: UNK
     Route: 048
     Dates: start: 20180520
  3. HYDROXYZINE [Suspect]
     Active Substance: HYDROXYZINE HYDROCHLORIDE
     Indication: UPPER RESPIRATORY TRACT INFECTION
     Dosage: UNK
     Route: 048
     Dates: start: 20180520, end: 20180524

REACTIONS (4)
  - Skin burning sensation [Recovered/Resolved]
  - Face oedema [Recovered/Resolved]
  - Generalised oedema [Recovered/Resolved]
  - Erythema [Recovered/Resolved]

NARRATIVE: CASE EVENT DATE: 20180524
